FAERS Safety Report 6207540-3 (Version None)
Quarter: 2009Q2

REPORT INFORMATION
  Report Type: 
  Country: None (occurrence: None)
  Receive Date: 20090526
  Receipt Date: 20090312
  Transmission Date: 20091009
  Serious: Yes (Death, Hospitalization)
  Sender: FDA-Public Use
  Company Number: 09P-013-0558367-00

PATIENT
  Age: 6 Month
  Sex: Male

DRUGS (6)
  1. SYNAGIS [Suspect]
     Indication: INFECTION PROPHYLAXIS
     Dosage: (80 MG,ONCE)
     Dates: start: 20081010, end: 20081010
  2. CHLORTALIDONE (CHLORTALIDONE) [Concomitant]
  3. MOTILLIUM(MOTILLIUM) [Concomitant]
  4. OMEPRAZOLE SODIUM(OMEPRAZOLE SODIUM) [Concomitant]
  5. ENALAPRI(ENALAPRIL) [Concomitant]
  6. GEVITAL (ERGOCALCIFEROL, ASCORBIC ACID, PYRIDOXINE HYDROCHLORIDE, TOCO [Concomitant]

REACTIONS (2)
  - CARDIAC PROCEDURE COMPLICATION [None]
  - RESPIRATORY DISTRESS [None]
